FAERS Safety Report 7729759-2 (Version None)
Quarter: 2011Q3

REPORT INFORMATION
  Report Type: 
  Country: None (occurrence: None)
  Receive Date: 20110901
  Receipt Date: 20110901
  Transmission Date: 20111222
  Serious: Yes (Disabling)
  Sender: FDA-Public Use
  Company Number: None

PATIENT
  Sex: Female
  Weight: 68.0396 kg

DRUGS (2)
  1. LIVALO [Suspect]
     Dosage: 1 PILL DAILY
  2. LIPITOR [Suspect]
     Indication: BLOOD CHOLESTEROL
     Dosage: 1 PILL DAILY 2 WKS MID 2009
     Dates: start: 20090101

REACTIONS (2)
  - PAIN IN EXTREMITY [None]
  - ARTHRALGIA [None]
